FAERS Safety Report 5096392-3 (Version None)
Quarter: 2006Q3

REPORT INFORMATION
  Report Type: 
  Country: None (occurrence: None)
  Receive Date: 20060728
  Receipt Date: 20060510
  Transmission Date: 20061208
  Serious: No
  Sender: FDA-Public Use
  Company Number: COT_0523_2006

PATIENT
  Age: 51 Year
  Sex: Female
  Weight: 95.2554 kg

DRUGS (20)
  1. VENTAVIS [Suspect]
     Indication: PULMONARY HYPERTENSION
     Dosage: 2.5 MCG 4 TIMES A DAY IH
     Dates: start: 20060502, end: 20060504
  2. AVAPRO [Concomitant]
  3. LEVOXYL [Concomitant]
  4. LASIX [Concomitant]
  5. PREDNISONE TAB [Concomitant]
  6. POTASSIUM CHLORIDE [Concomitant]
  7. ALPRAZOLAM [Concomitant]
  8. MULTI-VITAMIN [Concomitant]
  9. CALCIUM GLUCONATE [Concomitant]
  10. AGININE [Concomitant]
  11. CHONDROITIN [Concomitant]
  12. GLUCOSAMINE [Concomitant]
  13. FISH OIL [Concomitant]
  14. CO-Q-10 [Concomitant]
  15. ZYRTEC [Concomitant]
  16. ALBUTEROL [Concomitant]
  17. NEURONTIN [Concomitant]
  18. AZMACORT [Concomitant]
  19. PREVACID [Concomitant]
  20. COUMADIN [Concomitant]

REACTIONS (4)
  - BLOOD PRESSURE INCREASED [None]
  - FLUSHING [None]
  - HEADACHE [None]
  - LYMPHADENOPATHY [None]
